FAERS Safety Report 9150123 (Version 1)
Quarter: 2013Q1

REPORT INFORMATION
  Report Type: Spontaneous
  Country: US (occurrence: None)
  Receive Date: 20130131
  Receipt Date: 20130131
  Transmission Date: 20140127
  Serious: Yes (Other)
  Sender: FDA-Public Use
  Company Number: E2B_00000568

PATIENT
  Age: 65 Year
  Sex: Female
  Weight: 69.4 kg

DRUGS (3)
  1. LISINOPRIL TABLETS [Suspect]
     Indication: HYPERTENSION
     Route: 048
     Dates: start: 201202, end: 201212
  2. NALTREXONE [Concomitant]
  3. ALPRAZOLAM (XANAX) [Concomitant]

REACTIONS (1)
  - Gastrointestinal inflammation [None]
